FAERS Safety Report 15814707 (Version 8)
Quarter: 2019Q1

REPORT INFORMATION
  Report Type: Report from Study
  Country: US (occurrence: US)
  Receive Date: 20190111
  Receipt Date: 20190311
  Transmission Date: 20190417
  Serious: Yes (Other)
  Sender: FDA-Public Use
  Company Number: US-ACTELION-A-NJ2018-183715

PATIENT
  Age: 73 Year
  Sex: Female
  Weight: 74.38 kg

DRUGS (14)
  1. FERROUS GLUCONATE [Concomitant]
     Active Substance: FERROUS GLUCONATE
     Dosage: 324 MG, QOD
     Dates: start: 201807
  2. PREDNISONE. [Concomitant]
     Active Substance: PREDNISONE
     Dosage: 25 MG, QD
     Dates: start: 2016
  3. FELODIPINE. [Concomitant]
     Active Substance: FELODIPINE
     Dosage: 5 MG, QD
  4. PANTOPRAZOLE [Concomitant]
     Active Substance: PANTOPRAZOLE
     Dosage: 40 MG, QD
     Dates: start: 2018
  5. TYVASO [Suspect]
     Active Substance: TREPROSTINIL
     Dosage: 4 BREATH
     Route: 065
     Dates: start: 20190119
  6. AZATHIOPRINE. [Concomitant]
     Active Substance: AZATHIOPRINE
     Dosage: 150 MG, QD
  7. TYVASO [Suspect]
     Active Substance: TREPROSTINIL
     Indication: PRODUCT USED FOR UNKNOWN INDICATION
     Dosage: 0.6 MG/ML, QID
     Route: 065
     Dates: start: 20190112
  8. TYVASO [Suspect]
     Active Substance: TREPROSTINIL
     Dosage: 3 BREATHS 4 X DAY
     Route: 065
  9. HYDROCHLOROTHIAZIDE. [Concomitant]
     Active Substance: HYDROCHLOROTHIAZIDE
     Dosage: 12.5 MG, QD
  10. OMEGA 3 [Concomitant]
     Active Substance: OMEGA-3 FATTY ACIDS
     Dosage: 1000 MG, TID
     Dates: start: 201811
  11. OPSUMIT [Suspect]
     Active Substance: MACITENTAN
     Indication: PULMONARY ARTERIAL HYPERTENSION
     Dosage: 10 MG, QD
     Route: 048
     Dates: start: 20181204, end: 20190212
  12. CLOPIDOGREL [Concomitant]
     Active Substance: CLOPIDOGREL BISULFATE
     Dosage: 75 MG, QD
     Dates: start: 20171219
  13. SILDENAFIL. [Concomitant]
     Active Substance: SILDENAFIL
     Dosage: 10 MG, QD
     Dates: start: 2016
  14. SPIRONOLACTONE. [Concomitant]
     Active Substance: SPIRONOLACTONE
     Dosage: 25 MG, BID
     Dates: start: 201809

REACTIONS (13)
  - Loose tooth [Unknown]
  - Blood pressure decreased [Unknown]
  - Dizziness [Unknown]
  - Syncope [Unknown]
  - Condition aggravated [Unknown]
  - Loss of personal independence in daily activities [Unknown]
  - Productive cough [Not Recovered/Not Resolved]
  - Alopecia [Unknown]
  - Blindness [Unknown]
  - Asthenia [Unknown]
  - Pneumonia [Unknown]
  - Tooth disorder [Unknown]
  - Tooth loss [Unknown]

NARRATIVE: CASE EVENT DATE: 20181205
